FAERS Safety Report 4316818-X (Version None)
Quarter: 2004Q1

REPORT INFORMATION
  Report Type: 
  Country: None (occurrence: None)
  Receive Date: 20040311
  Receipt Date: 20040227
  Transmission Date: 20041129
  Serious: Yes (Other)
  Sender: FDA-Public Use
  Company Number: 2004197068JP

PATIENT
  Age: 27 Year
  Sex: Male

DRUGS (3)
  1. MEDROL [Suspect]
     Indication: IMMUNOSUPPRESSION
     Dosage: 4 MG, QD, ORAL
     Route: 048
  2. TACROLIMUS (TACROLIMUS) [Concomitant]
  3. MYCOPHENOLATE MOFFETIL (MYCOPHENOLATE MOFETIL) [Concomitant]

REACTIONS (3)
  - BACTERAEMIA [None]
  - C-REACTIVE PROTEIN INCREASED [None]
  - HELICOBACTER INFECTION [None]
